FAERS Safety Report 15900537 (Version 1)
Quarter: 2019Q1

REPORT INFORMATION
  Report Type: Spontaneous
  Country: US (occurrence: US)
  Receive Date: 20190201
  Receipt Date: 20190201
  Transmission Date: 20190417
  Serious: Yes (Other)
  Sender: FDA-Public Use
  Company Number: US-PFIZER INC-2019030941

PATIENT
  Sex: Male

DRUGS (1)
  1. COLESTIPOL HCL [Suspect]
     Active Substance: COLESTIPOL HYDROCHLORIDE
     Dosage: 1 G, UNK

REACTIONS (2)
  - Product physical issue [Unknown]
  - Choking [Unknown]
